APPROVED DRUG PRODUCT: SUTAB
Active Ingredient: MAGNESIUM SULFATE; POTASSIUM CHLORIDE; SODIUM SULFATE
Strength: 0.225GM;0.188GM;1.479GM
Dosage Form/Route: TABLET;ORAL
Application: N213135 | Product #001
Applicant: AZURITY PHARMACEUTICALS INC
Approved: Nov 10, 2020 | RLD: Yes | RS: Yes | Type: RX

PATENTS:
Patent 11382864 | Expires: Aug 4, 2037
Patent 11033498 | Expires: Aug 4, 2037
Patent 11638697 | Expires: Aug 4, 2037
Patent 10143656 | Expires: Aug 4, 2037